FAERS Safety Report 8051205-2 (Version None)
Quarter: 2012Q1

REPORT INFORMATION
  Report Type: 
  Country: None (occurrence: None)
  Receive Date: 20120117
  Receipt Date: 20120106
  Transmission Date: 20120608
  Serious: Yes (Death, Other)
  Sender: FDA-Public Use
  Company Number: US-BAXTER-2010BH002723

PATIENT
  Age: 58 Year
  Sex: Female

DRUGS (57)
  1. HEPARIN SODIUM INJECTION [Suspect]
     Route: 058
     Dates: start: 20071211, end: 20071213
  2. HEPARIN SODIUM INJECTION [Suspect]
     Route: 058
     Dates: start: 20080105, end: 20080106
  3. HEPARIN SODIUM INJECTION [Suspect]
     Route: 058
     Dates: start: 20080112, end: 20080112
  4. HEPARIN SODIUM INJECTION [Suspect]
     Route: 058
     Dates: start: 20080113, end: 20080113
  5. HEPARIN SODIUM INJECTION [Suspect]
     Route: 042
     Dates: start: 20080129, end: 20080129
  6. HEPARIN SODIUM INJECTION [Suspect]
     Route: 042
     Dates: start: 20080129, end: 20080129
  7. HEPARIN SODIUM INJECTION [Suspect]
     Route: 042
     Dates: start: 20080203, end: 20080203
  8. HEPARIN SODIUM INJECTION [Suspect]
     Route: 058
     Dates: start: 20080120, end: 20080121
  9. HEPARIN SODIUM INJECTION [Suspect]
     Indication: DIALYSIS
     Route: 042
     Dates: start: 20071126, end: 20071126
  10. HEPARIN SODIUM INJECTION [Suspect]
     Indication: PROPHYLAXIS
     Route: 042
     Dates: start: 20071126, end: 20071126
  11. HEPARIN SODIUM INJECTION [Suspect]
     Route: 042
     Dates: start: 20080128
  12. HEPARIN SODIUM INJECTION [Suspect]
     Route: 058
     Dates: start: 20080110, end: 20080110
  13. HEPARIN SODIUM INJECTION [Suspect]
     Route: 058
     Dates: start: 20080122, end: 20080122
  14. HEPARIN SODIUM INJECTION [Suspect]
     Route: 065
     Dates: start: 20080128, end: 20080201
  15. HEPARIN SODIUM INJECTION [Suspect]
     Route: 065
     Dates: start: 20080101
  16. HEPARIN SODIUM 5,000 UNITS IN DEXTROSE 5% [Suspect]
     Indication: PULMONARY EMBOLISM
     Route: 041
     Dates: start: 20071126, end: 20071202
  17. HEPARIN SODIUM 5,000 UNITS IN DEXTROSE 5% [Suspect]
     Route: 041
     Dates: start: 20071209, end: 20071211
  18. HEPARIN SODIUM INJECTION [Suspect]
     Indication: PULMONARY EMBOLISM
     Route: 042
     Dates: start: 20071126, end: 20071126
  19. HEPARIN SODIUM INJECTION [Suspect]
     Route: 058
     Dates: start: 20080105, end: 20080106
  20. HEPARIN SODIUM INJECTION [Suspect]
     Route: 058
     Dates: start: 20080113, end: 20080113
  21. HEPARIN SODIUM INJECTION [Suspect]
     Route: 042
     Dates: start: 20080203, end: 20080203
  22. HEPARIN SODIUM INJECTION [Suspect]
     Route: 058
     Dates: start: 20080120, end: 20080121
  23. HEPARIN SODIUM INJECTION [Suspect]
     Route: 042
     Dates: start: 20080128
  24. HEPARIN SODIUM INJECTION [Suspect]
     Route: 058
     Dates: start: 20071211, end: 20071213
  25. HEPARIN SODIUM INJECTION [Suspect]
     Route: 058
     Dates: start: 20080110, end: 20080110
  26. HEPARIN SODIUM INJECTION [Suspect]
     Route: 065
     Dates: start: 20080128, end: 20080201
  27. HEPARIN SODIUM INJECTION [Suspect]
     Route: 042
     Dates: start: 20080128
  28. HEPARIN SODIUM INJECTION [Suspect]
     Route: 042
     Dates: start: 20080128
  29. HEPARIN SODIUM INJECTION [Suspect]
     Route: 058
     Dates: start: 20080105, end: 20080106
  30. HEPARIN SODIUM INJECTION [Suspect]
     Route: 058
     Dates: start: 20080110, end: 20080110
  31. HEPARIN SODIUM INJECTION [Suspect]
     Route: 058
     Dates: start: 20080119, end: 20080119
  32. HEPARIN SODIUM INJECTION [Suspect]
     Route: 042
     Dates: start: 20080129, end: 20080129
  33. HEPARIN SODIUM INJECTION [Suspect]
     Route: 042
     Dates: start: 20080203, end: 20080203
  34. HEPARIN SODIUM INJECTION [Suspect]
     Route: 058
     Dates: start: 20080120, end: 20080121
  35. HEPARIN SODIUM INJECTION [Suspect]
     Route: 058
     Dates: start: 20071211, end: 20071213
  36. HEPARIN SODIUM INJECTION [Suspect]
     Route: 058
     Dates: start: 20080107, end: 20080109
  37. HEPARIN SODIUM INJECTION [Suspect]
     Route: 058
     Dates: start: 20080107, end: 20080109
  38. HEPARIN SODIUM INJECTION [Suspect]
     Route: 058
     Dates: start: 20080112, end: 20080112
  39. HEPARIN SODIUM INJECTION [Suspect]
     Route: 058
     Dates: start: 20071211, end: 20071213
  40. HEPARIN SODIUM INJECTION [Suspect]
     Route: 042
     Dates: start: 20080128
  41. HEPARIN SODIUM INJECTION [Suspect]
     Route: 042
     Dates: start: 20080129
  42. HEPARIN SODIUM INJECTION [Suspect]
     Route: 058
     Dates: start: 20080112, end: 20080112
  43. HEPARIN SODIUM INJECTION [Suspect]
     Route: 058
     Dates: start: 20080119, end: 20080119
  44. HEPARIN SODIUM INJECTION [Suspect]
     Route: 058
     Dates: start: 20080119, end: 20080119
  45. HEPARIN SODIUM INJECTION [Suspect]
     Route: 058
     Dates: start: 20080122, end: 20080122
  46. HEPARIN SODIUM INJECTION [Suspect]
     Route: 065
     Dates: start: 20080128, end: 20080201
  47. HEPARIN SODIUM INJECTION [Suspect]
     Route: 058
     Dates: start: 20071211, end: 20071213
  48. OXYGEN [Concomitant]
     Indication: CHRONIC OBSTRUCTIVE PULMONARY DISEASE
     Route: 055
  49. HEPARIN SODIUM INJECTION [Suspect]
     Route: 058
     Dates: start: 20071211, end: 20071213
  50. HEPARIN SODIUM INJECTION [Suspect]
     Route: 042
     Dates: start: 20080128
  51. HEPARIN SODIUM INJECTION [Suspect]
     Route: 058
     Dates: start: 20071211, end: 20071213
  52. HEPARIN SODIUM INJECTION [Suspect]
     Route: 042
     Dates: start: 20080129
  53. HEPARIN SODIUM INJECTION [Suspect]
     Route: 042
     Dates: start: 20080129
  54. HEPARIN SODIUM INJECTION [Suspect]
     Route: 058
     Dates: start: 20080107, end: 20080109
  55. HEPARIN SODIUM INJECTION [Suspect]
     Route: 058
     Dates: start: 20080113, end: 20080113
  56. HEPARIN SODIUM INJECTION [Suspect]
     Route: 058
     Dates: start: 20080122, end: 20080122
  57. HEPARIN SODIUM INJECTION [Suspect]
     Route: 042
     Dates: start: 20071126, end: 20071126

REACTIONS (10)
  - LACTIC ACIDOSIS [None]
  - METABOLIC ENCEPHALOPATHY [None]
  - PNEUMONIA [None]
  - OEDEMA PERIPHERAL [None]
  - LUNG ABSCESS [None]
  - URINE OUTPUT DECREASED [None]
  - PHARYNGEAL OEDEMA [None]
  - SEPTIC SHOCK [None]
  - RESPIRATORY FAILURE [None]
  - RENAL FAILURE ACUTE [None]
